FAERS Safety Report 22141374 (Version 2)
Quarter: 2023Q1

REPORT INFORMATION
  Report Type: Report from Study
  Country: US (occurrence: US)
  Receive Date: 20230327
  Receipt Date: 20230330
  Transmission Date: 20230417
  Serious: Yes (Death, Other)
  Sender: FDA-Public Use
  Company Number: US-PFIZER INC-PV202300055999

PATIENT

DRUGS (5)
  1. FLUDARABINE PHOSPHATE [Suspect]
     Active Substance: FLUDARABINE PHOSPHATE
     Indication: Acute myeloid leukaemia
     Dosage: 25 MG/M2 PER DAY
  2. TACROLIMUS [Suspect]
     Active Substance: TACROLIMUS
     Indication: Acute myeloid leukaemia
     Dosage: UNK
  3. CYCLOPHOSPHAMIDE [Suspect]
     Active Substance: CYCLOPHOSPHAMIDE
     Indication: Acute myeloid leukaemia
     Dosage: 14.5 MG/KG PER DAY
  4. MYCOPHENOLATE MOFETIL [Suspect]
     Active Substance: MYCOPHENOLATE MOFETIL
     Indication: Acute myeloid leukaemia
     Dosage: UNK
  5. PALIFERMIN [Suspect]
     Active Substance: PALIFERMIN
     Indication: Acute myeloid leukaemia
     Dosage: 60 UG/KG, DAILY

REACTIONS (1)
  - Venoocclusive liver disease [Fatal]
